FAERS Safety Report 7613581-1 (Version None)
Quarter: 2011Q3

REPORT INFORMATION
  Report Type: 
  Country: None (occurrence: None)
  Receive Date: 20110708
  Receipt Date: 20110630
  Transmission Date: 20111222
  Serious: Yes (Death, Hospitalization)
  Sender: FDA-Public Use
  Company Number: 2011SP029196

PATIENT
  Age: 56 Year
  Sex: Male
  Weight: 69 kg

DRUGS (4)
  1. REBETOL [Suspect]
     Indication: HEPATITIS C
     Dosage: 200 MG;QID;PO
     Route: 048
     Dates: start: 20071108, end: 20080807
  2. METOPROLOL TARTRATE [Concomitant]
  3. PEGINTRON (PEGINTERFERON ALDA-2B /10543001/) [Suspect]
     Indication: HEPATITIS C
     Dosage: 80 MCG;QW;SC
     Route: 058
     Dates: start: 20071108, end: 20080807
  4. SPIRIVA [Concomitant]

REACTIONS (2)
  - HEPATIC NEOPLASM MALIGNANT [None]
  - COMA HEPATIC [None]
